FAERS Safety Report 26012476 (Version 1)
Quarter: 2025Q4

REPORT INFORMATION
  Report Type: Spontaneous
  Country: JP (occurrence: JP)
  Receive Date: 20251107
  Receipt Date: 20251107
  Transmission Date: 20260118
  Serious: Yes (Other)
  Sender: MERCK SHARP & DOHME LLC
  Company Number: JP-MSD-M2022-14219

PATIENT
  Age: 64 Year
  Sex: Female
  Weight: 75 kg

DRUGS (8)
  1. KEYTRUDA [Suspect]
     Active Substance: PEMBROLIZUMAB
     Indication: Uterine cancer
  2. KEYTRUDA [Suspect]
     Active Substance: PEMBROLIZUMAB
     Indication: Uterine cancer
  3. KEYTRUDA [Suspect]
     Active Substance: PEMBROLIZUMAB
     Indication: Uterine cancer
     Dosage: DOSE DESCRIPTION : 200 MILLIGRAM, Q3W?DAILY DOSE : 9.4 MILLIGRAM?REGIMEN DOSE : 400  MILLIGRAM
     Route: 041
     Dates: start: 20220329, end: 20220419
  4. KEYTRUDA [Suspect]
     Active Substance: PEMBROLIZUMAB
     Indication: Uterine cancer
     Route: 041
     Dates: start: 20220517, end: 20220823
  5. LENVIMA [Suspect]
     Active Substance: LENVATINIB
     Indication: Uterine cancer
     Dosage: DOSE DESCRIPTION : 20 MILLIGRAM, QD?CONCENTRATION: 10 MILLIGRAM
     Route: 048
     Dates: start: 20220329, end: 20220419
  6. LENVIMA [Suspect]
     Active Substance: LENVATINIB
     Indication: Uterine cancer
     Dosage: DOSE DESCRIPTION : 14 MILLIGRAM, QD?DAILY DOSE : 14 MILLIGRAM?REGIMEN DOSE : 210  MILLIGRAM
     Route: 048
     Dates: start: 20220503, end: 20220517
  7. LENVIMA [Suspect]
     Active Substance: LENVATINIB
     Indication: Uterine cancer
     Dosage: DOSE DESCRIPTION : 10 MILLIGRAM, QD
     Route: 048
     Dates: start: 20220524, end: 20220712
  8. LENVIMA [Suspect]
     Active Substance: LENVATINIB
     Indication: Uterine cancer
     Dosage: DOSE DESCRIPTION : 10 MILLIGRAM, QD?DAILY DOSE : 10 MILLIGRAM?REGIMEN DOSE : 430  MILLIGRAM
     Route: 048
     Dates: start: 20220719, end: 20220830

REACTIONS (18)
  - Polyarthritis [Unknown]
  - Immune-mediated cholangitis [Unknown]
  - Skin disorder [Recovering/Resolving]
  - Cardiac dysfunction [Recovering/Resolving]
  - Cardiomyopathy [Recovered/Resolved]
  - Hyperthyroidism [Recovering/Resolving]
  - Hypothyroidism [Recovering/Resolving]
  - Malignant neoplasm progression [Unknown]
  - Palmar-plantar erythrodysaesthesia syndrome [Recovering/Resolving]
  - Vaginal neoplasm [Unknown]
  - Intermenstrual bleeding [Unknown]
  - Fatigue [Recovered/Resolved]
  - Fatigue [Recovering/Resolving]
  - Proteinuria [Recovering/Resolving]
  - Weight decreased [Recovering/Resolving]
  - Erythema [Unknown]
  - Epistaxis [Recovered/Resolved]
  - Hypertension [Recovered/Resolved]

NARRATIVE: CASE EVENT DATE: 20220101
